FAERS Safety Report 11757964 (Version 1)
Quarter: 2015Q4

REPORT INFORMATION
  Report Type: Report from Study
  Country: US (occurrence: None)
  Receive Date: 20151117
  Receipt Date: 20151117
  Transmission Date: 20160304
  Serious: Yes (Hospitalization)
  Sender: FDA-Public Use
  Company Number: 2015US003044

PATIENT
  Sex: Female

DRUGS (7)
  1. PROAIR HFA [Concomitant]
     Active Substance: ALBUTEROL SULFATE
  2. IPRATROPIUM (IPRATROPIUM) [Concomitant]
  3. SYMBICORT [Concomitant]
     Active Substance: BUDESONIDE\FORMOTEROL FUMARATE DIHYDRATE
  4. NEXIUM [Concomitant]
     Active Substance: ESOMEPRAZOLE MAGNESIUM
  5. GLASSIA [Suspect]
     Active Substance: .ALPHA.1-PROTEINASE INHIBITOR HUMAN
     Indication: ALPHA-1 ANTI-TRYPSIN DEFICIENCY
     Route: 042
     Dates: start: 201408
  6. ALBUTEROL (SALBUTAMOL) [Concomitant]
     Active Substance: ALBUTEROL
  7. LOSARTAN (LOSARTAN) [Concomitant]
     Active Substance: LOSARTAN

REACTIONS (6)
  - Rash [None]
  - Bronchitis [None]
  - Condition aggravated [None]
  - Diarrhoea [None]
  - Drug dose omission [None]
  - Oedema peripheral [None]
